FAERS Safety Report 13630633 (Version 1)
Quarter: 2017Q2

REPORT INFORMATION
  Report Type: Spontaneous
  Country: US (occurrence: US)
  Receive Date: 20170531
  Receipt Date: 20170531
  Transmission Date: 20170830
  Serious: No
  Sender: FDA-Public Use
  Company Number: US-ASTELLAS-1316955

PATIENT
  Sex: Female
  Weight: 46.31 kg

DRUGS (19)
  1. HCTZ [Concomitant]
     Active Substance: HYDROCHLOROTHIAZIDE
     Dosage: DAILY IN AM
     Route: 048
  2. GLUCOSAMINE/CHONDROITIN/MSM [Concomitant]
     Dosage: 500-400-422-83 MG
     Route: 048
  3. FISH OIL [Concomitant]
     Active Substance: FISH OIL
     Route: 048
  4. MEGACE [Concomitant]
     Active Substance: MEGESTROL ACETATE
     Dosage: FORM STRENGTH: 40 MG/ML
     Route: 048
  5. TARCEVA [Suspect]
     Active Substance: ERLOTINIB HYDROCHLORIDE
     Indication: LUNG NEOPLASM MALIGNANT
     Route: 048
     Dates: start: 20130717
  6. LEVOTHYROXINE SODIUM. [Concomitant]
     Active Substance: LEVOTHYROXINE SODIUM
     Route: 048
  7. LECITHIN [Concomitant]
     Active Substance: LECITHIN
     Route: 048
  8. MINOCYCLINE HCL [Concomitant]
     Active Substance: MINOCYCLINE HYDROCHLORIDE
     Route: 048
  9. TARCEVA [Suspect]
     Active Substance: ERLOTINIB HYDROCHLORIDE
     Route: 048
     Dates: start: 20130719
  10. EMLA [Concomitant]
     Active Substance: LIDOCAINE\PRILOCAINE
     Dosage: APLLY TO PORT SITE 30 MIN PRIOR TO USE.
     Route: 065
  11. MICRO-K 10 [Concomitant]
     Active Substance: POTASSIUM CHLORIDE
     Dosage: REPORTER AS MICRO-K 10 MEQ CR
     Route: 048
  12. CINNAMON. [Concomitant]
     Active Substance: CINNAMON
     Route: 048
  13. PROCHLORPERAZINE MALEATE. [Concomitant]
     Active Substance: PROCHLORPERAZINE MALEATE
     Indication: NAUSEA
  14. ATORVASTATIN CALCIUM. [Concomitant]
     Active Substance: ATORVASTATIN CALCIUM
     Dosage: ONE TABLET DAILY BY MOUTH IN TH PM.
     Route: 048
  15. LOSARTAN POTASSIUM. [Concomitant]
     Active Substance: LOSARTAN POTASSIUM
     Dosage: DAILY AM
     Route: 048
  16. NASACORT AQ [Concomitant]
     Active Substance: TRIAMCINOLONE ACETONIDE
     Dosage: 2 SPRAYS IN EACH NOSTRIL TWICE DAILY.?WHEN SYMPTOM RESOLVE THEN REDUCE TO 2 SPRAYS IN EACH NOSTRIL O
     Route: 065
  17. OMEPRAZOLE. [Concomitant]
     Active Substance: OMEPRAZOLE
  18. LORAZEPAM. [Concomitant]
     Active Substance: LORAZEPAM
  19. HYDROCODONE/ACETAMINOPHEN [Concomitant]
     Active Substance: ACETAMINOPHEN\HYDROCODONE
     Indication: PAIN
     Dosage: 5-325 MG. 1-2 TABLETS EVERY 8 HOURS AS NEEDED
     Route: 048

REACTIONS (6)
  - Rhinorrhoea [Unknown]
  - Dry skin [Unknown]
  - Rhinorrhoea [Not Recovered/Not Resolved]
  - Rhinitis [Not Recovered/Not Resolved]
  - Dysphonia [Unknown]
  - Diarrhoea [Unknown]
